FAERS Safety Report 21688508 (Version 2)
Quarter: 2023Q1

REPORT INFORMATION
  Report Type: Spontaneous
  Country: US (occurrence: US)
  Receive Date: 20221206
  Receipt Date: 20230109
  Transmission Date: 20230417
  Serious: Yes (Death, Other)
  Sender: FDA-Public Use
  Company Number: US-NOVOPROD-985646

PATIENT
  Sex: Male

DRUGS (1)
  1. SEMAGLUTIDE [Suspect]
     Active Substance: SEMAGLUTIDE
     Indication: Glycosylated haemoglobin increased
     Dosage: 20 IU, QW
     Route: 058
     Dates: start: 202205

REACTIONS (3)
  - Colon cancer stage IV [Fatal]
  - Hepatic lesion [Not Recovered/Not Resolved]
  - Adulterated product [Unknown]

NARRATIVE: CASE EVENT DATE: 20220501
